FAERS Safety Report 5314453-8 (Version None)
Quarter: 2007Q2

REPORT INFORMATION
  Report Type: 
  Country: None (occurrence: None)
  Receive Date: 20070501
  Receipt Date: 20070501
  Transmission Date: 20071010
  Serious: Yes (Hospitalization)
  Sender: FDA-Public Use
  Company Number: None

PATIENT
  Sex: Female
  Weight: 65.318 kg

DRUGS (12)
  1. MEGACE [Suspect]
     Indication: PANCREATIC CARCINOMA METASTATIC
     Dosage: 800 MG  QDAY  PO
     Route: 048
     Dates: start: 20070212, end: 20070412
  2. MEGACE [Suspect]
     Indication: WEIGHT DECREASED
     Dosage: 800 MG  QDAY  PO
     Route: 048
     Dates: start: 20070212, end: 20070412
  3. NOVOLIN R [Concomitant]
  4. COMPAZINE [Concomitant]
  5. ALDACTONE [Concomitant]
  6. OXYCODONE HCL [Concomitant]
  7. CATAPRES [Concomitant]
  8. MORPHINE SULFATE [Concomitant]
  9. DEMADEX [Concomitant]
  10. LOVENOX [Concomitant]
  11. K-DUR 10 [Concomitant]
  12. SENOKOT [Concomitant]

REACTIONS (8)
  - ABASIA [None]
  - ASTHENIA [None]
  - GENERALISED OEDEMA [None]
  - INADEQUATE ANALGESIA [None]
  - NO THERAPEUTIC RESPONSE [None]
  - PAIN [None]
  - PITTING OEDEMA [None]
  - WEIGHT INCREASED [None]
